FAERS Safety Report 8430956-1 (Version None)
Quarter: 2012Q2

REPORT INFORMATION
  Report Type: 
  Country: None (occurrence: None)
  Receive Date: 20120612
  Receipt Date: 20120529
  Transmission Date: 20120825
  Serious: No
  Sender: FDA-Public Use
  Company Number: US-ASTRAZENECA-2012SE34829

PATIENT
  Sex: Female

DRUGS (1)
  1. NEXIUM [Suspect]
     Route: 048
     Dates: start: 20120110

REACTIONS (4)
  - ASPIRATION [None]
  - PEPTIC ULCER [None]
  - VOMITING [None]
  - HIATUS HERNIA [None]
